FAERS Safety Report 17278840 (Version 1)
Quarter: 2020Q1

REPORT INFORMATION
  Report Type: Spontaneous
  Country: FR (occurrence: FR)
  Receive Date: 20200116
  Receipt Date: 20200116
  Transmission Date: 20200409
  Serious: Yes (Other)
  Sender: FDA-Public Use
  Company Number: FR-PFIZER INC-2020017840

PATIENT
  Age: 17 Year
  Sex: Male

DRUGS (3)
  1. VINCRISTINE SULFATE. [Suspect]
     Active Substance: VINCRISTINE SULFATE
     Indication: HODGKIN^S DISEASE
     Dosage: 1 DF, CYCLIC
     Route: 041
     Dates: start: 20191104
  2. DACARBAZINE LIPOMED [Suspect]
     Active Substance: DACARBAZINE
     Indication: HODGKIN^S DISEASE
     Dosage: 1 DF, CYCLIC
     Route: 041
     Dates: start: 20191104, end: 20191106
  3. CYCLOPHOSPHAMIDE SANDOZ [Suspect]
     Active Substance: CYCLOPHOSPHAMIDE
     Indication: HODGKIN^S DISEASE
     Dosage: 1 DF, CYCLIC
     Route: 041
     Dates: start: 20191104

REACTIONS (1)
  - Urticaria [Recovered/Resolved]

NARRATIVE: CASE EVENT DATE: 20191110
